FAERS Safety Report 5337021-0 (Version None)
Quarter: 2007Q2

REPORT INFORMATION
  Report Type: 
  Country: None (occurrence: None)
  Receive Date: 20070523
  Receipt Date: 20070509
  Transmission Date: 20071010
  Serious: Yes (Other)
  Sender: FDA-Public Use
  Company Number: 2007JP002037

PATIENT
  Age: 81 Year
  Sex: Female

DRUGS (3)
  1. FUNGUARD(MICAFUNGIN) INJECTION [Suspect]
     Dosage: 150 MG, D, IV DRIP
     Route: 041
     Dates: start: 20070507, end: 20070508
  2. HABEKACIN (ARBEKACIN) INJECTION [Concomitant]
  3. PENTICILLIN (PIPERACILLIN SODIUM) INJECTION [Concomitant]

REACTIONS (3)
  - DRUG ERUPTION [None]
  - PYREXIA [None]
  - TREMOR [None]
